FAERS Safety Report 9173835 (Version 1)
Quarter: 2013Q1

REPORT INFORMATION
  Report Type: Spontaneous
  Country: AU (occurrence: AU)
  Receive Date: 20130320
  Receipt Date: 20130320
  Transmission Date: 20140127
  Serious: Yes (Hospitalization, Other)
  Sender: FDA-Public Use
  Company Number: AU-COVIDIEN/TYCO HEALTHCARE/MALLINCKRODT-T201301173

PATIENT
  Age: 53 Year
  Sex: Female

DRUGS (3)
  1. EXALGO EXTENDED RELEASE [Suspect]
     Indication: PRODUCT USED FOR UNKNOWN INDICATION
     Dosage: 48 MG, IN 1 DAY
     Route: 042
     Dates: end: 201201
  2. OXYCONTIN [Suspect]
     Indication: PRODUCT USED FOR UNKNOWN INDICATION
     Dosage: 160 MG,  IN 1 D
     Route: 065
     Dates: start: 201201
  3. MORPHINE [Suspect]
     Indication: PRODUCT USED FOR UNKNOWN INDICATION
     Dosage: UNK

REACTIONS (5)
  - Osteomyelitis [Unknown]
  - Abscess [Unknown]
  - Drug abuse [Unknown]
  - Opiates positive [Unknown]
  - Drug ineffective [Unknown]
